FAERS Safety Report 25565413 (Version 1)
Quarter: 2025Q3

REPORT INFORMATION
  Report Type: Spontaneous
  Country: US (occurrence: US)
  Receive Date: 20250716
  Receipt Date: 20250716
  Transmission Date: 20251021
  Serious: No
  Sender: NOVO NORDISK
  Company Number: US-NOVOPROD-1361564

PATIENT
  Age: 53 Year
  Sex: Female

DRUGS (1)
  1. OZEMPIC [Suspect]
     Active Substance: SEMAGLUTIDE
     Indication: Weight control
     Dosage: 2 MG, QW
     Route: 058
     Dates: start: 202405

REACTIONS (4)
  - Irritable bowel syndrome [Not Recovered/Not Resolved]
  - Constipation [Not Recovered/Not Resolved]
  - Product use in unapproved indication [Unknown]
  - Product storage error [Unknown]

NARRATIVE: CASE EVENT DATE: 20240601
